FAERS Safety Report 5241650-2 (Version None)
Quarter: 2007Q1

REPORT INFORMATION
  Report Type: 
  Country: None (occurrence: None)
  Receive Date: 20070215
  Receipt Date: 20070215
  Transmission Date: 20070707
  Serious: Yes (Other)
  Sender: FDA-Public Use
  Company Number: None

PATIENT
  Age: 70 Year
  Sex: Male
  Weight: 92.9874 kg

DRUGS (1)
  1. ARTH-RX [Suspect]
     Indication: CONTUSION
     Dosage: DAILY 3 TO 4 TIMES CUTANEOUS; TWICE A DAY
     Route: 003
     Dates: start: 20070202, end: 20070204

REACTIONS (5)
  - APPLICATION SITE BURN [None]
  - APPLICATION SITE ERYTHEMA [None]
  - APPLICATION SITE PAIN [None]
  - APPLICATION SITE VESICLES [None]
  - CAUSTIC INJURY [None]
